FAERS Safety Report 20409688 (Version 1)
Quarter: 2022Q1

REPORT INFORMATION
  Report Type: Spontaneous
  Country: US (occurrence: US)
  Receive Date: 20220201
  Receipt Date: 20220201
  Transmission Date: 20220423
  Serious: No
  Sender: FDA-Public Use
  Company Number: US-LUPIN PHARMACEUTICALS INC.-2022-01351

PATIENT
  Sex: Male

DRUGS (1)
  1. ALBUTEROL SULFATE [Suspect]
     Active Substance: ALBUTEROL SULFATE
     Indication: Dyspnoea
     Dosage: UNK, QID (INHLAE 2 TO 3 INHALATIONS PO QID)
     Dates: start: 20211102

REACTIONS (3)
  - Device ineffective [Unknown]
  - Device delivery system issue [Unknown]
  - Product substitution issue [Unknown]
